FAERS Safety Report 5413624-X (Version None)
Quarter: 2007Q3

REPORT INFORMATION
  Report Type: 
  Country: None (occurrence: None)
  Receive Date: 20070814
  Receipt Date: 20070313
  Transmission Date: 20080115
  Serious: No
  Sender: FDA-Public Use
  Company Number: US-BRISTOL-MYERS SQUIBB COMPANY-13711817

PATIENT
  Age: 69 Year
  Sex: Female
  Weight: 60 kg

DRUGS (8)
  1. GLUCOVANCE [Suspect]
     Indication: DIABETES MELLITUS
     Dosage: 5MG/500MG, 2 TABLETS IN THE AM AND 2 TABLETS IN THE PM.
  2. LOTREL [Concomitant]
  3. COREG [Concomitant]
  4. PLAVIX [Concomitant]
  5. DIGESTIVE ENZYMES [Concomitant]
  6. MULTIVITAMIN [Concomitant]
  7. MINERAL TAB [Concomitant]
  8. CALCIUM CHLORIDE [Concomitant]

REACTIONS (1)
  - THROAT IRRITATION [None]
